FAERS Safety Report 13854918 (Version 4)
Quarter: 2017Q3

REPORT INFORMATION
  Report Type: Spontaneous
  Country: US (occurrence: US)
  Receive Date: 20170810
  Receipt Date: 20170828
  Transmission Date: 20171127
  Serious: Yes (Other)
  Sender: FDA-Public Use
  Company Number: PHEH2017US022934

PATIENT
  Age: 60 Year
  Sex: Female
  Weight: 78.5 kg

DRUGS (17)
  1. ANASTROHEXAL [Suspect]
     Active Substance: ANASTROZOLE
     Indication: METASTASES TO BONE
     Dosage: UNK
     Route: 065
     Dates: start: 20121203
  2. ZOMETA [Suspect]
     Active Substance: ZOLEDRONIC ACID
     Indication: METASTASES TO BONE
     Dosage: MONTHLY (QMO
     Route: 042
     Dates: start: 2012
  3. ZOMETA [Suspect]
     Active Substance: ZOLEDRONIC ACID
     Dosage: 4 MG/5 ML, EVERY 3 MONTHS
     Route: 042
     Dates: start: 201411
  4. FEMARA [Suspect]
     Active Substance: LETROZOLE
     Indication: BREAST CANCER METASTATIC
     Dosage: 1 DF, QD
     Route: 048
     Dates: start: 20170308
  5. PALBOCICLIB [Suspect]
     Active Substance: PALBOCICLIB
     Indication: BREAST CANCER METASTATIC
     Dosage: 125 MG, QD (DAILY) 3 WEEKS ON THEN 1 WEEK OFF
     Route: 048
     Dates: start: 20170307
  6. VITAMIN D3 [Concomitant]
     Active Substance: CHOLECALCIFEROL
     Indication: PRODUCT USED FOR UNKNOWN INDICATION
     Dosage: 2000 U, QD
     Route: 048
  7. BETAMETHASONE VALERATE. [Concomitant]
     Active Substance: BETAMETHASONE VALERATE
     Indication: PRODUCT USED FOR UNKNOWN INDICATION
     Route: 061
  8. FERROUS SULFATE. [Concomitant]
     Active Substance: FERROUS SULFATE
     Indication: PRODUCT USED FOR UNKNOWN INDICATION
     Dosage: 1 DF, QD (WITH BREAKFAST)
     Route: 048
  9. ONDANSETRON [Concomitant]
     Active Substance: ONDANSETRON
     Indication: PRODUCT USED FOR UNKNOWN INDICATION
     Dosage: 1 DF, PRN
     Route: 048
  10. EVEROLIMUS [Suspect]
     Active Substance: EVEROLIMUS
     Indication: BREAST CANCER METASTATIC
     Dosage: UNK
     Route: 065
     Dates: start: 20140326
  11. XELODA [Suspect]
     Active Substance: CAPECITABINE
     Indication: BREAST CANCER METASTATIC
     Dosage: 1 WEEK ON AND 1 WEEK OFF
     Route: 065
     Dates: start: 20150615
  12. CALCIUM [Concomitant]
     Active Substance: CALCIUM
     Indication: PRODUCT USED FOR UNKNOWN INDICATION
     Dosage: INTERMITTENTLY
     Route: 065
  13. VITAMIN D [Concomitant]
     Active Substance: CHOLECALCIFEROL
     Indication: PRODUCT USED FOR UNKNOWN INDICATION
     Dosage: 50000 U, UNK
     Route: 065
  14. FASLODEX [Suspect]
     Active Substance: FULVESTRANT
     Indication: METASTASES TO BONE
     Dosage: UNK
     Route: 065
     Dates: start: 20121203
  15. EXEMESTANE. [Suspect]
     Active Substance: EXEMESTANE
     Indication: BREAST CANCER METASTATIC
     Dosage: UNK
     Route: 065
     Dates: start: 20140326
  16. FLUOCINONIDE. [Concomitant]
     Active Substance: FLUOCINONIDE
     Indication: PRODUCT USED FOR UNKNOWN INDICATION
     Route: 061
  17. VITAMIIN C [Concomitant]
     Active Substance: ASCORBIC ACID
     Indication: PRODUCT USED FOR UNKNOWN INDICATION
     Dosage: UNK UNK, QD
     Route: 048

REACTIONS (17)
  - Excoriation [Recovering/Resolving]
  - Tumour marker increased [Unknown]
  - Malignant neoplasm progression [Unknown]
  - Weight increased [Unknown]
  - Bone pain [Unknown]
  - Hunger [Unknown]
  - Carbohydrate antigen 27.29 increased [Unknown]
  - Alopecia [Unknown]
  - Breast cancer metastatic [Unknown]
  - Blood pressure increased [Unknown]
  - Epistaxis [Unknown]
  - Malignant pleural effusion [Unknown]
  - Leukopenia [Not Recovered/Not Resolved]
  - Skin hyperpigmentation [Unknown]
  - Prurigo [Unknown]
  - Fatigue [Recovered/Resolved]
  - Nausea [Recovered/Resolved]

NARRATIVE: CASE EVENT DATE: 201506
